FAERS Safety Report 20748179 (Version 3)
Quarter: 2024Q2

REPORT INFORMATION
  Report Type: Report from Study
  Country: FR (occurrence: FR)
  Receive Date: 20220426
  Receipt Date: 20240615
  Transmission Date: 20240716
  Serious: Yes (Other)
  Sender: FDA-Public Use
  Company Number: FR-ABBVIE-22K-056-4367733-00

PATIENT
  Age: 53 Year
  Sex: Male
  Weight: 94 kg

DRUGS (17)
  1. UPADACITINIB [Suspect]
     Active Substance: UPADACITINIB
     Indication: Rheumatoid arthritis
     Route: 048
     Dates: start: 20211210, end: 20220322
  2. CHOLECALCIFEROL [Concomitant]
     Active Substance: CHOLECALCIFEROL
     Indication: Prophylaxis
     Dosage: ZYMAD D
     Route: 048
     Dates: start: 20211207
  3. PANTOPRAZOLE [Concomitant]
     Active Substance: PANTOPRAZOLE
     Indication: Prophylaxis
     Route: 048
     Dates: start: 202104
  4. NEBIVOLOL [Concomitant]
     Active Substance: NEBIVOLOL
     Indication: Tachycardia
     Route: 048
     Dates: start: 2017
  5. SITAGLIPTIN PHOSPHATE [Concomitant]
     Active Substance: SITAGLIPTIN PHOSPHATE
     Indication: Type 2 diabetes mellitus
     Route: 048
     Dates: start: 2007
  6. FLUTICASONE FUROATE\VILANTEROL TRIFENATATE [Concomitant]
     Active Substance: FLUTICASONE FUROATE\VILANTEROL TRIFENATATE
     Indication: Chronic obstructive pulmonary disease
     Route: 048
     Dates: start: 2009
  7. ALBUTEROL [Concomitant]
     Active Substance: ALBUTEROL
     Indication: Chronic obstructive pulmonary disease
     Dosage: AS NEEDED
     Route: 055
     Dates: start: 2009
  8. FENOFIBRATE [Concomitant]
     Active Substance: FENOFIBRATE
     Indication: Type 2 diabetes mellitus
     Route: 048
     Dates: start: 2007
  9. DIAMICRON [Concomitant]
     Indication: Type 2 diabetes mellitus
     Route: 048
     Dates: start: 2007
  10. METFORMIN HYDROCHLORIDE [Concomitant]
     Active Substance: METFORMIN HYDROCHLORIDE
     Indication: Type 2 diabetes mellitus
     Dosage: TIME INTERVAL: 0.33333333 DAYS
     Route: 048
     Dates: start: 2007
  11. KETOPROFEN [Concomitant]
     Active Substance: KETOPROFEN
     Indication: Prophylaxis
     Dosage: TIME INTERVAL: 0.33333333 DAYS
     Route: 048
     Dates: start: 2007
  12. IRBESARTAN [Concomitant]
     Active Substance: IRBESARTAN
     Indication: Tachycardia
     Route: 048
     Dates: start: 2017
  13. PREDNISONE [Concomitant]
     Active Substance: PREDNISONE
     Indication: Rheumatoid arthritis
     Route: 048
     Dates: start: 20211120
  14. INFLUENZA VIRUS VACCINE [Concomitant]
     Active Substance: INFLUENZA VIRUS VACCINE
     Indication: Product used for unknown indication
     Dosage: SEASONAL INFLUENZA VACCINE
     Dates: start: 202110, end: 202110
  15. INFLUENZA VIRUS VACCINE [Concomitant]
     Active Substance: INFLUENZA VIRUS VACCINE
     Indication: Product used for unknown indication
     Dates: start: 202201, end: 202201
  16. SARS-CoV-2 vaccine [Concomitant]
     Indication: Product used for unknown indication
     Dates: start: 202201, end: 202201
  17. SARS-CoV-2 vaccine [Concomitant]
     Indication: Product used for unknown indication
     Route: 030
     Dates: start: 202201, end: 202201

REACTIONS (2)
  - Pilonidal disease [Recovered/Resolved]
  - SARS-CoV-2 test positive [Recovered/Resolved]

NARRATIVE: CASE EVENT DATE: 20220322
